FAERS Safety Report 6563488-6 (Version None)
Quarter: 2010Q1

REPORT INFORMATION
  Report Type: 
  Country: None (occurrence: None)
  Receive Date: 20100130
  Receipt Date: 20091209
  Transmission Date: 20100710
  Serious: No
  Sender: FDA-Public Use
  Company Number: US-ABBOTT-09P-163-0614613-00

PATIENT
  Sex: Male
  Weight: 59.02 kg

DRUGS (6)
  1. HUMIRA [Suspect]
     Indication: CROHN'S DISEASE
     Route: 058
     Dates: start: 20090501
  2. ASACOL [Concomitant]
     Indication: INFLAMMATION
  3. CLONAZEPAM [Concomitant]
     Indication: MUSCLE SPASMS
  4. MAX D [Concomitant]
     Indication: VITAMIN D DEFICIENCY
  5. VITAMIN B12 SHOTS [Concomitant]
     Indication: DRUG USE FOR UNKNOWN INDICATION
  6. FLUOXETINE [Concomitant]
     Indication: DRUG USE FOR UNKNOWN INDICATION

REACTIONS (4)
  - BLOOD PRESSURE DECREASED [None]
  - DYSPHONIA [None]
  - NIGHT SWEATS [None]
  - SINUSITIS [None]
